FAERS Safety Report 5804141-3 (Version None)
Quarter: 2008Q3

REPORT INFORMATION
  Report Type: 
  Country: None (occurrence: None)
  Receive Date: 20080709
  Receipt Date: 20080626
  Transmission Date: 20090109
  Serious: Yes (Hospitalization, Other)
  Sender: FDA-Public Use
  Company Number: PHHY2008JP11604

PATIENT
  Age: 48 Year
  Sex: Female
  Weight: 47 kg

DRUGS (4)
  1. ZOMETA [Suspect]
     Indication: METASTASIS
     Dosage: 4 MG, UNK
     Route: 042
     Dates: start: 20060801, end: 20061001
  2. ZOMETA [Suspect]
     Dosage: 4 MG, UNK
     Route: 042
     Dates: start: 20060801, end: 20061001
  3. AREDIA [Suspect]
     Indication: METASTASIS
     Dosage: 45 MG, UNK
     Route: 042
     Dates: start: 20040301, end: 20050101
  4. AREDIA [Suspect]
     Dosage: 90 MG, UNK
     Route: 042
     Dates: start: 20050201, end: 20060701

REACTIONS (16)
  - ABSCESS [None]
  - BLOOD GLUCOSE INCREASED [None]
  - C-REACTIVE PROTEIN INCREASED [None]
  - DENTAL OPERATION [None]
  - FISTULA [None]
  - HYPERAESTHESIA [None]
  - HYPERBARIC OXYGEN THERAPY [None]
  - IMPLANT SITE EROSION [None]
  - IMPLANT SITE PAIN [None]
  - MEDICAL DEVICE REMOVAL [None]
  - OSTEONECROSIS [None]
  - PAIN [None]
  - PLATELET COUNT INCREASED [None]
  - SECRETION DISCHARGE [None]
  - SEQUESTRECTOMY [None]
  - WHITE BLOOD CELL COUNT INCREASED [None]
